FAERS Safety Report 8251919-5 (Version None)
Quarter: 2012Q2

REPORT INFORMATION
  Report Type: 
  Country: None (occurrence: None)
  Receive Date: 20120402
  Receipt Date: 20120326
  Transmission Date: 20120825
  Serious: Yes (Hospitalization, Other)
  Sender: FDA-Public Use
  Company Number: US-ABBOTT-12P-163-0912214-00

PATIENT
  Sex: Female
  Weight: 49.032 kg

DRUGS (12)
  1. HUMIRA [Suspect]
     Indication: CROHN'S DISEASE
     Dates: start: 20090901, end: 20090901
  2. CREON [Concomitant]
     Indication: CROHN'S DISEASE
  3. MULTI-VITAMIN [Concomitant]
     Indication: VITAMIN SUPPLEMENTATION
  4. CALCIUM CARBONATE [Concomitant]
     Indication: MINERAL SUPPLEMENTATION
  5. VITAMIN D [Concomitant]
     Indication: VITAMIN SUPPLEMENTATION
  6. IMODIUM [Concomitant]
     Indication: CROHN'S DISEASE
  7. TEMAZEPAM [Concomitant]
     Indication: INSOMNIA
  8. HUMIRA [Suspect]
  9. VITAMIN B-12 [Concomitant]
     Indication: VITAMIN SUPPLEMENTATION
  10. LEXAPRO [Concomitant]
     Indication: PRODUCT USED FOR UNKNOWN INDICATION
  11. HUMIRA [Suspect]
     Indication: ANAL FISTULA
  12. LYRICA [Concomitant]
     Indication: SPINAL FUSION SURGERY

REACTIONS (11)
  - WHITE BLOOD CELL COUNT INCREASED [None]
  - DIARRHOEA [None]
  - ANAL FISTULA [None]
  - INFECTION [None]
  - FISTULA [None]
  - GASTROINTESTINAL PAIN [None]
  - INTESTINAL ANASTOMOSIS [None]
  - BENIGN GASTROINTESTINAL NEOPLASM [None]
  - HAEMORRHOIDS [None]
  - PSORIASIS [None]
  - CANDIDIASIS [None]
